FAERS Safety Report 7620801-6 (Version None)
Quarter: 2011Q3

REPORT INFORMATION
  Report Type: 
  Country: None (occurrence: None)
  Receive Date: 20110719
  Receipt Date: 20110705
  Transmission Date: 20111222
  Serious: Yes (Other)
  Sender: FDA-Public Use
  Company Number: US-CELGENEUS-163-20785-11070852

PATIENT

DRUGS (9)
  1. DOXORUBICIN HCL [Concomitant]
     Indication: MULTIPLE MYELOMA
     Route: 051
  2. THALOMID [Suspect]
     Indication: MULTIPLE MYELOMA
     Route: 048
  3. BORTEZOMIB [Suspect]
     Indication: MULTIPLE MYELOMA
     Route: 065
  4. MELPHALAN HYDROCHLORIDE [Suspect]
     Indication: MULTIPLE MYELOMA
     Dosage: 200 MILLIGRAM/SQ. METER
     Route: 065
  5. CISPLATIN [Concomitant]
     Indication: MULTIPLE MYELOMA
     Route: 051
  6. MELPHALAN HYDROCHLORIDE [Suspect]
     Dosage: 50 MILLIGRAM/SQ. METER
     Route: 065
  7. CYCLOPHOSPHAMIDE [Concomitant]
     Indication: MULTIPLE MYELOMA
     Route: 051
  8. ETOPOSIDE [Concomitant]
     Indication: MULTIPLE MYELOMA
     Route: 051
  9. DEXAMETHASONE [Suspect]
     Indication: MULTIPLE MYELOMA
     Route: 065

REACTIONS (6)
  - GASTROINTESTINAL INFLAMMATION [None]
  - GASTRITIS [None]
  - STOMATITIS [None]
  - COLITIS [None]
  - OESOPHAGITIS [None]
  - PHARYNGITIS [None]
